FAERS Safety Report 6617988-0 (Version None)
Quarter: 2010Q1

REPORT INFORMATION
  Report Type: 
  Country: None (occurrence: None)
  Receive Date: 20100223
  Receipt Date: 20091207
  Transmission Date: 20100710
  Serious: Yes (Hospitalization)
  Sender: FDA-Public Use
  Company Number: 8053442

PATIENT
  Sex: Female
  Weight: 58 kg

DRUGS (4)
  1. CERTOLIZUMAB PEGOL (CERTOLIZUMAB PEGOL) [Suspect]
     Indication: CROHN'S DISEASE
     Dosage: (200 MG 1X/2 WEEKS, 3 SUBCUTANEOUS); SEE IMAGE
     Route: 058
     Dates: start: 20090414, end: 20090501
  2. CERTOLIZUMAB PEGOL (CERTOLIZUMAB PEGOL) [Suspect]
     Indication: CROHN'S DISEASE
     Dosage: (200 MG 1X/2 WEEKS, 3 SUBCUTANEOUS); SEE IMAGE
     Route: 058
     Dates: start: 20090601, end: 20091016
  3. PREDNISOLONE [Concomitant]
  4. LEVOTHYROXINE SODIUM [Concomitant]

REACTIONS (2)
  - DYSPLASIA [None]
  - HYPERPLASIA [None]
